FAERS Safety Report 18968997 (Version 1)
Quarter: 2021Q1

REPORT INFORMATION
  Report Type: Spontaneous
  Country: US (occurrence: US)
  Receive Date: 20210304
  Receipt Date: 20210304
  Transmission Date: 20210420
  Serious: Yes (Hospitalization)
  Sender: FDA-Public Use
  Company Number: US-MYLANLABS-2021M1013046

PATIENT
  Age: 56 Year
  Sex: Female

DRUGS (1)
  1. PARACETAMOL [Suspect]
     Active Substance: ACETAMINOPHEN
     Indication: PRODUCT USED FOR UNKNOWN INDICATION
     Dosage: PILL
     Route: 048

REACTIONS (5)
  - Alanine aminotransferase abnormal [Recovering/Resolving]
  - Acidosis [Recovering/Resolving]
  - Toxicity to various agents [Recovering/Resolving]
  - Aspartate aminotransferase abnormal [Recovering/Resolving]
  - Lactic acidosis [Recovering/Resolving]
